FAERS Safety Report 16628195 (Version 1)
Quarter: 2019Q3

REPORT INFORMATION
  Report Type: Spontaneous
  Country: JP (occurrence: JP)
  Receive Date: 20190724
  Receipt Date: 20190724
  Transmission Date: 20191004
  Serious: Yes (Hospitalization, Other)
  Sender: FDA-Public Use
  Company Number: JP-TOLMAR, INC.-TOLG20192322

PATIENT
  Age: 62 Year
  Sex: Female

DRUGS (3)
  1. METRONIDAZOLE. [Suspect]
     Active Substance: METRONIDAZOLE
     Indication: INTESTINAL PSEUDO-OBSTRUCTION
     Dosage: 750 MG
     Route: 048
  2. METRONIDAZOLE. [Suspect]
     Active Substance: METRONIDAZOLE
     Dosage: 500 MG
     Route: 048
  3. METRONIDAZOLE. [Suspect]
     Active Substance: METRONIDAZOLE
     Dosage: 750 MG
     Route: 048

REACTIONS (10)
  - Ataxia [Recovered/Resolved]
  - Decreased vibratory sense [Unknown]
  - Dysarthria [Recovered/Resolved]
  - Hyperreflexia [Unknown]
  - Altered state of consciousness [Recovering/Resolving]
  - Gait inability [Recovered/Resolved]
  - Disturbance in attention [Recovered/Resolved]
  - Romberg test positive [Unknown]
  - Toxic encephalopathy [Recovering/Resolving]
  - Memory impairment [Recovered/Resolved]
